FAERS Safety Report 25119967 (Version 1)
Quarter: 2025Q1

REPORT INFORMATION
  Report Type: Spontaneous
  Country: US (occurrence: US)
  Receive Date: 20250325
  Receipt Date: 20250325
  Transmission Date: 20250409
  Serious: No
  Sender: BAUSCH AND LOMB
  Company Number: US-BAUSCHBL-2025BNL004783

PATIENT
  Sex: Female

DRUGS (3)
  1. XIIDRA [Suspect]
     Active Substance: LIFITEGRAST
     Indication: Dry eye
     Dosage: 1 GTT BID (1 DROP IN EACH EYE TWICE A DAY)
     Route: 047
     Dates: start: 202501
  2. IVIZIA DRY EYE [Concomitant]
     Active Substance: POVIDONE
     Indication: Product used for unknown indication
     Route: 047
  3. TYRVAYA [Concomitant]
     Active Substance: VARENICLINE TARTRATE
     Indication: Product used for unknown indication
     Route: 045

REACTIONS (2)
  - Burning sensation [Recovered/Resolved]
  - Eye discharge [Not Recovered/Not Resolved]

NARRATIVE: CASE EVENT DATE: 20250101
